FAERS Safety Report 10419941 (Version 2)
Quarter: 2014Q3

REPORT INFORMATION
  Report Type: Spontaneous
  Country: US (occurrence: None)
  Receive Date: 20140828
  Receipt Date: 20140912
  Transmission Date: 20150326
  Serious: Yes (Hospitalization)
  Sender: FDA-Public Use
  Company Number: 2014-US-010444

PATIENT
  Age: 57 Year
  Sex: Female

DRUGS (2)
  1. MORPHINE (MORPHINE) (MORPHINE) [Suspect]
     Active Substance: MORPHINE
     Indication: PAIN
     Dates: end: 2014
  2. XYREM [Suspect]
     Active Substance: SODIUM OXYBATE
     Indication: NARCOLEPSY
     Route: 048
     Dates: start: 201403

REACTIONS (5)
  - Overdose [None]
  - Incorrect dose administered [None]
  - Unresponsive to stimuli [None]
  - Confusional state [None]
  - Intentional product misuse [None]

NARRATIVE: CASE EVENT DATE: 2014
